FAERS Safety Report 5603162-3 (Version None)
Quarter: 2008Q1

REPORT INFORMATION
  Report Type: 
  Country: None (occurrence: None)
  Receive Date: 20080125
  Receipt Date: 20080116
  Transmission Date: 20080703
  Serious: Yes (Hospitalization, Other)
  Sender: FDA-Public Use
  Company Number: AR-PFIZER INC-2007105234

PATIENT
  Sex: Male
  Weight: 90 kg

DRUGS (5)
  1. SUTENT [Suspect]
     Indication: RENAL CELL CARCINOMA
     Route: 048
  2. ATENOLOL [Concomitant]
  3. CLONIDINE W/CHLORTHALIDONE [Concomitant]
  4. ENALAPRIL MALEATE/LOSARTAN [Concomitant]
  5. LOPID [Concomitant]

REACTIONS (8)
  - BLOOD PRESSURE INCREASED [None]
  - DEHYDRATION [None]
  - DYSGEUSIA [None]
  - ECZEMA [None]
  - FATIGUE [None]
  - TREMOR [None]
  - URINARY TRACT INFECTION [None]
  - WEIGHT DECREASED [None]
